FAERS Safety Report 8932626 (Version 1)
Quarter: 2012Q4

REPORT INFORMATION
  Report Type: Spontaneous
  Country: NL (occurrence: None)
  Receive Date: 20121119
  Receipt Date: 20121119
  Transmission Date: 20130627
  Serious: Yes (Hospitalization)
  Sender: FDA-Public Use
  Company Number: 1481678

PATIENT
  Age: 64 Year
  Sex: Female
  Weight: 35.38 kg

DRUGS (4)
  1. DOCETAXEL [Suspect]
     Indication: BREAST CARCINOMA
     Dosage: 1 DF dosage form (3 week) (not otherwise specified)
     Route: 042
     Dates: start: 20120911, end: 20120921
  2. (PLANTAGO OVATA) [Concomitant]
  3. (PANTOZOL  /012632041) [Concomitant]
  4. (SERETIDE} [Concomitant]

REACTIONS (4)
  - Diarrhoea [None]
  - Leukopenia [None]
  - Pyrexia [None]
  - Oral fungal infection [None]
